FAERS Safety Report 9281299 (Version 4)
Quarter: 2013Q4

REPORT INFORMATION
  Report Type: Spontaneous
  Country: US (occurrence: None)
  Receive Date: 20130502
  Receipt Date: 20131115
  Transmission Date: 20140711
  Serious: Yes (Hospitalization)
  Sender: FDA-Public Use
  Company Number: 2012US000901

PATIENT
  Age: 62 Year
  Sex: Male
  Weight: 127.1 kg

DRUGS (4)
  1. PONATINIB (AP24534) TABLET [Suspect]
     Indication: CHRONIC MYELOID LEUKAEMIA
     Route: 048
     Dates: start: 20120719, end: 20121105
  2. ALLOPURINOL [Concomitant]
  3. COREG (CARVEDILOL) [Concomitant]
  4. IBUPROFEN (IBUPROFEN) [Concomitant]

REACTIONS (15)
  - Non-cardiac chest pain [None]
  - Tricuspid valve incompetence [None]
  - Cardiomyopathy [None]
  - Troponin increased [None]
  - Ejection fraction decreased [None]
  - Dilatation ventricular [None]
  - Left ventricular hypertrophy [None]
  - Diastolic dysfunction [None]
  - Ventricular hypokinesia [None]
  - Left atrial dilatation [None]
  - Mitral valve disease [None]
  - Mitral valve incompetence [None]
  - Gastrooesophageal reflux disease [None]
  - Left ventricular dysfunction [None]
  - Inferior vena cava dilatation [None]
